FAERS Safety Report 19437744 (Version 1)
Quarter: 2021Q2

REPORT INFORMATION
  Report Type: Spontaneous
  Country: US (occurrence: US)
  Receive Date: 20210618
  Receipt Date: 20210618
  Transmission Date: 20210717
  Serious: Yes (Other)
  Sender: FDA-Public Use
  Company Number: US-PFIZER INC-2021655828

PATIENT
  Age: 53 Year
  Sex: Female

DRUGS (1)
  1. BICILLIN L?A [Suspect]
     Active Substance: PENICILLIN G BENZATHINE
     Dosage: UNK

REACTIONS (4)
  - Injection site bruising [Unknown]
  - Blindness [Unknown]
  - Pain [Unknown]
  - Injection site mass [Unknown]
